FAERS Safety Report 4319982-1 (Version None)
Quarter: 2004Q1

REPORT INFORMATION
  Report Type: 
  Country: None (occurrence: None)
  Receive Date: 20040316
  Receipt Date: 20040227
  Transmission Date: 20041129
  Serious: Yes (Hospitalization)
  Sender: FDA-Public Use
  Company Number: US_0402101109

PATIENT
  Sex: Male

DRUGS (3)
  1. GEMCITABINE HYDROCHLORIDE-IV (GEMCITABINE) [Suspect]
     Indication: PANCREATIC CARCINOMA
     Dosage: 1000 MG/M2 OTHER
     Route: 050
  2. CISPLATIN [Suspect]
     Indication: PANCREATIC CARCINOMA
     Dosage: 30 MG/M2 OTHER
     Route: 050
  3. RADIATION [Suspect]
     Indication: PANCREATIC CARCINOMA
     Dosage: 2.4 GRAY OTHER
     Route: 050

REACTIONS (2)
  - GASTRIC OUTLET OBSTRUCTION [None]
  - INTESTINAL ULCER [None]
